FAERS Safety Report 18159973 (Version 2)
Quarter: 2020Q3

REPORT INFORMATION
  Report Type: Spontaneous
  Country: US (occurrence: US)
  Receive Date: 20200818
  Receipt Date: 20200923
  Transmission Date: 20201103
  Serious: No
  Sender: FDA-Public Use
  Company Number: US-GW PHARMA-202008USGW02788

PATIENT

DRUGS (6)
  1. EPIDIOLEX [Suspect]
     Active Substance: CANNABIDIOL
     Indication: LENNOX-GASTAUT SYNDROME
     Dosage: 1130 MILLIGRAM, BID
     Route: 048
     Dates: start: 20200623, end: 2020
  2. EPIDIOLEX [Suspect]
     Active Substance: CANNABIDIOL
     Dosage: 1130 MILLIGRAM, BID
     Route: 048
     Dates: start: 20200623, end: 2020
  3. EPIDIOLEX [Suspect]
     Active Substance: CANNABIDIOL
     Dosage: 1130 MILLIGRAM, BID
     Route: 048
     Dates: start: 20200623, end: 2020
  4. EPIDIOLEX [Suspect]
     Active Substance: CANNABIDIOL
     Dosage: UNK (DECREASED DOSE)
     Route: 048
     Dates: start: 2020
  5. EPIDIOLEX [Suspect]
     Active Substance: CANNABIDIOL
     Dosage: UNK (DECREASED DOSE)
     Route: 048
     Dates: start: 2020
  6. EPIDIOLEX [Suspect]
     Active Substance: CANNABIDIOL
     Dosage: UNK (DECREASED DOSE)
     Route: 048
     Dates: start: 2020

REACTIONS (4)
  - Nausea [Not Recovered/Not Resolved]
  - Abdominal pain upper [Not Recovered/Not Resolved]
  - Headache [Not Recovered/Not Resolved]
  - Product dose omission issue [Unknown]

NARRATIVE: CASE EVENT DATE: 20200812
